FAERS Safety Report 8155627-0 (Version None)
Quarter: 2012Q1

REPORT INFORMATION
  Report Type: 
  Country: None (occurrence: None)
  Receive Date: 20120222
  Receipt Date: 20120216
  Transmission Date: 20120608
  Serious: No
  Sender: FDA-Public Use
  Company Number: US-PFIZER INC-2012043428

PATIENT
  Age: 53 Year
  Sex: Female

DRUGS (1)
  1. TORISEL [Suspect]
     Indication: RENAL CELL CARCINOMA
     Dosage: UNK
     Dates: start: 20090818, end: 20110901

REACTIONS (4)
  - LIMB DISCOMFORT [None]
  - DISEASE PROGRESSION [None]
  - BURNING SENSATION [None]
  - RENAL CELL CARCINOMA [None]
